FAERS Safety Report 5268908-5 (Version None)
Quarter: 2007Q1

REPORT INFORMATION
  Report Type: 
  Country: None (occurrence: None)
  Receive Date: 20061213
  Receipt Date: 20040127
  Transmission Date: 20070707
  Serious: Yes (Other)
  Sender: FDA-Public Use
  Company Number: 2003UW16926

PATIENT
  Age: 61 Year
  Sex: Female
  Weight: 55.3388 kg

DRUGS (7)
  1. IRESSA [Suspect]
     Indication: NON-SMALL CELL LUNG CANCER
     Dosage: 250 MG PO
     Route: 048
     Dates: start: 20030301
  2. TUMS [Concomitant]
  3. VITAMIN CAP [Concomitant]
  4. XANAX [Concomitant]
  5. ASCORBIC ACID [Concomitant]
  6. VITAMIN E [Concomitant]
  7. BIOTIN [Concomitant]

REACTIONS (4)
  - CARBOHYDRATE ANTIGEN 27.29 INCREASED [None]
  - CARCINOEMBRYONIC ANTIGEN INCREASED [None]
  - PAIN [None]
  - WEIGHT INCREASED [None]
